FAERS Safety Report 4646788-6 (Version None)
Quarter: 2005Q2

REPORT INFORMATION
  Report Type: 
  Country: None (occurrence: None)
  Receive Date: 20050331
  Receipt Date: 20041208
  Transmission Date: 20051028
  Serious: No
  Sender: FDA-Public Use
  Company Number: 04P-163-0282905-00

PATIENT
  Age: 67 Year
  Sex: Female
  Weight: 79.3795 kg

DRUGS (8)
  1. HUMIRA [Suspect]
     Indication: RHEUMATOID ARTHRITIS
     Dosage: 40 MG, 1 IN 2 WK, SUBCUTANEOUS
     Route: 058
     Dates: start: 20040701, end: 20041125
  2. BUCINDOLOL HYDROCHLORIDE [Concomitant]
  3. DIOVAN [Concomitant]
  4. DILTIAZEM HYDROCHLORIDE [Concomitant]
  5. MULTI-VITAMINS [Concomitant]
  6. ASCORBIC ACID [Concomitant]
  7. CALCIUM WITH D [Concomitant]
  8. PARACETAMOL [Concomitant]

REACTIONS (7)
  - ASTHENIA [None]
  - DRY EYE [None]
  - EYE INFLAMMATION [None]
  - KIDNEY INFECTION [None]
  - TREMOR [None]
  - URINARY INCONTINENCE [None]
  - VISUAL DISTURBANCE [None]
